FAERS Safety Report 11587773 (Version 1)
Quarter: 2015Q4

REPORT INFORMATION
  Report Type: Spontaneous
  Country: BE (occurrence: BE)
  Receive Date: 20151001
  Receipt Date: 20151001
  Transmission Date: 20160304
  Serious: Yes (Other)
  Sender: FDA-Public Use
  Company Number: BE-ABBVIE-15P-013-1474122-00

PATIENT
  Age: 50 Year
  Sex: Male

DRUGS (1)
  1. LIPANTHYLNANO [Suspect]
     Active Substance: FENOFIBRATE
     Indication: BLOOD TRIGLYCERIDES INCREASED
     Route: 065

REACTIONS (3)
  - Feeling abnormal [Unknown]
  - Angina pectoris [Unknown]
  - Paraesthesia [Unknown]
